FAERS Safety Report 19770381 (Version 2)
Quarter: 2021Q3

REPORT INFORMATION
  Report Type: Spontaneous
  Country: DE (occurrence: DE)
  Receive Date: 20210901
  Receipt Date: 20210918
  Transmission Date: 20211014
  Serious: Yes (Other)
  Sender: FDA-Public Use
  Company Number: DE-AUROBINDO-AUR-APL-2021-036390

PATIENT
  Age: 56 Year
  Sex: Female

DRUGS (1)
  1. BUCAIN 0.5 % SOLUTION FOR INJECTION [Suspect]
     Active Substance: BUPIVACAINE HYDROCHLORIDE
     Indication: PRODUCT USED FOR UNKNOWN INDICATION
     Dosage: UNK
     Route: 065
     Dates: start: 2016

REACTIONS (5)
  - Cardiac arrest [Unknown]
  - Anaphylactic shock [Unknown]
  - Respiratory arrest [Unknown]
  - Mental disorder [Unknown]
  - Amnesia [Unknown]

NARRATIVE: CASE EVENT DATE: 201607
